FAERS Safety Report 4355926-4 (Version None)
Quarter: 2004Q2

REPORT INFORMATION
  Report Type: 
  Country: None (occurrence: None)
  Receive Date: 20040507
  Receipt Date: 20040423
  Transmission Date: 20050107
  Serious: Yes (Hospitalization)
  Sender: FDA-Public Use
  Company Number: 001385

PATIENT
  Age: 60 Year
  Sex: Female

DRUGS (3)
  1. METHOTREXATE [Suspect]
  2. LEFLUNOMIDE [Suspect]
  3. ETANERCEPT (ETANERCEPT) INJECTION [Suspect]
     Indication: RHEUMATOID ARTHRITIS
     Dosage: 25.00 MG, 2/WEEK, SUBCUTANEOUS
     Route: 058
     Dates: start: 19980131

REACTIONS (2)
  - CYANOSIS [None]
  - THROMBOANGIITIS OBLITERANS [None]
